FAERS Safety Report 6424439-8 (Version None)
Quarter: 2009Q4

REPORT INFORMATION
  Report Type: 
  Country: None (occurrence: None)
  Receive Date: 20091103
  Receipt Date: 20091026
  Transmission Date: 20100525
  Serious: Yes (Hospitalization)
  Sender: FDA-Public Use
  Company Number: DE-ABBOTT-09P-062-0605165-00

PATIENT
  Age: 79 Year
  Sex: Female
  Weight: 56.5 kg

DRUGS (9)
  1. ZEMPLAR [Suspect]
     Indication: DRUG USE FOR UNKNOWN INDICATION
     Dosage: 5 UG PER WEEK
     Route: 042
     Dates: start: 20090622
  2. PHOSPHOMORM [Concomitant]
     Indication: DRUG USE FOR UNKNOWN INDICATION
     Route: 048
  3. ARANESP [Concomitant]
     Indication: DRUG USE FOR UNKNOWN INDICATION
     Route: 042
     Dates: start: 20090427
  4. LUMIGAN GERKE  EYE DROPS [Concomitant]
     Indication: DRUG USE FOR UNKNOWN INDICATION
     Dosage: IN EACH EYE
  5. OMEPRAZOL DURA [Concomitant]
     Indication: DRUG USE FOR UNKNOWN INDICATION
     Route: 048
  6. ASS 100 1 A PHARMA [Concomitant]
     Indication: DRUG USE FOR UNKNOWN INDICATION
  7. AMLODIPIN AL [Concomitant]
     Indication: DRUG USE FOR UNKNOWN INDICATION
     Route: 048
  8. BISOPROLOL RATIO [Concomitant]
     Indication: DRUG USE FOR UNKNOWN INDICATION
     Dates: start: 20060321
  9. FERRLECIT [Concomitant]
     Indication: DRUG USE FOR UNKNOWN INDICATION
     Route: 042
     Dates: start: 20090615

REACTIONS (1)
  - CAROTID ARTERY STENOSIS [None]
